FAERS Safety Report 23199912 (Version 3)
Quarter: 2023Q4

REPORT INFORMATION
  Report Type: Spontaneous
  Country: US (occurrence: US)
  Receive Date: 20231117
  Receipt Date: 20231208
  Transmission Date: 20240110
  Serious: Yes (Hospitalization, Other)
  Sender: FDA-Public Use
  Company Number: US-JAZZ PHARMACEUTICALS-2023-US-023309

PATIENT
  Age: 25 Year
  Sex: Male
  Weight: 83.2 kg

DRUGS (4)
  1. XYREM [Suspect]
     Active Substance: SODIUM OXYBATE
     Indication: Product used for unknown indication
     Dosage: 4.5 GRAM, BID
     Route: 048
  2. AMPHETAMINE [Suspect]
     Active Substance: AMPHETAMINE
     Indication: Product used for unknown indication
     Dosage: 30 MILLIGRAM
  3. DULOXETINE [Suspect]
     Active Substance: DULOXETINE
     Indication: Product used for unknown indication
  4. ALPRAZOLAM [Suspect]
     Active Substance: ALPRAZOLAM
     Indication: Product used for unknown indication
     Dosage: 0.25 MILLIGRAM

REACTIONS (7)
  - Coma [Recovered/Resolved]
  - Hypothermia [Recovered/Resolved]
  - Unevaluable event [Recovered/Resolved]
  - Intentional product misuse [Unknown]
  - Muscle spasticity [Recovered/Resolved]
  - Dyskinesia [Recovered/Resolved]
  - Blood glucose decreased [Recovered/Resolved]
